FAERS Safety Report 8273369-8 (Version None)
Quarter: 2012Q2

REPORT INFORMATION
  Report Type: 
  Country: None (occurrence: None)
  Receive Date: 20120411
  Receipt Date: 20120404
  Transmission Date: 20120825
  Serious: Yes (Other)
  Sender: FDA-Public Use
  Company Number: PHHY2012CA005448

PATIENT
  Sex: Female
  Weight: 57 kg

DRUGS (6)
  1. EXTAVIA [Suspect]
     Dosage: 2 MIU, QOD
     Route: 058
     Dates: start: 20120201, end: 20120201
  2. IBUPROFEN (ADVIL) [Concomitant]
     Dosage: 2 PILLS BEFORE BED
     Route: 048
     Dates: start: 20120124
  3. ASPIRIN [Concomitant]
  4. EXTAVIA [Suspect]
     Indication: RELAPSING-REMITTING MULTIPLE SCLEROSIS
     Dosage: 4 MIU, QOD
     Route: 058
     Dates: start: 20120116
  5. EXTAVIA [Suspect]
     Dosage: 8 MIU, QOD
     Route: 058
     Dates: start: 20120203
  6. TYLENOL (CAPLET) [Concomitant]
     Dosage: 1000 MG, UNK

REACTIONS (15)
  - HYPOAESTHESIA [None]
  - HAEMATOCHEZIA [None]
  - MUSCULAR WEAKNESS [None]
  - PARAESTHESIA [None]
  - FEELING HOT [None]
  - PAIN IN EXTREMITY [None]
  - INJECTION SITE REACTION [None]
  - INJECTION SITE PAIN [None]
  - BURNING SENSATION [None]
  - PAIN [None]
  - INJECTION SITE ERYTHEMA [None]
  - UHTHOFF'S PHENOMENON [None]
  - SENSATION OF HEAVINESS [None]
  - SKIN BURNING SENSATION [None]
  - NAUSEA [None]
